FAERS Safety Report 4942951-5 (Version None)
Quarter: 2006Q1

REPORT INFORMATION
  Report Type: 
  Country: None (occurrence: None)
  Receive Date: 20060309
  Receipt Date: 20060221
  Transmission Date: 20060701
  Serious: Yes (Hospitalization)
  Sender: FDA-Public Use
  Company Number: 2006-BP-02140RO

PATIENT
  Age: 35 Year
  Sex: Female

DRUGS (1)
  1. PREDNISONE TAB [Suspect]
     Indication: POLYARTERITIS NODOSA
     Dosage: PO
     Route: 048

REACTIONS (3)
  - ANEURYSM [None]
  - FIBROMUSCULAR DYSPLASIA [None]
  - SPLENIC ARTERY ANEURYSM [None]
